FAERS Safety Report 24570006 (Version 6)
Quarter: 2025Q3

REPORT INFORMATION
  Report Type: Spontaneous
  Country: US (occurrence: US)
  Receive Date: 20241031
  Receipt Date: 20250902
  Transmission Date: 20251021
  Serious: No
  Sender: PFIZER
  Company Number: US-PFIZER INC-202400254130

PATIENT
  Age: 72 Year
  Sex: Female

DRUGS (5)
  1. TUKYSA [Suspect]
     Active Substance: TUCATINIB
     Indication: Breast cancer female
     Dosage: 300 MG, 2X/DAY (2DF)
     Route: 048
     Dates: end: 202410
  2. TUKYSA [Suspect]
     Active Substance: TUCATINIB
     Dosage: TUKYSA 150MG, TWO TABLETS TWICE A DAY
  3. TUKYSA [Suspect]
     Active Substance: TUCATINIB
     Dosage: 50MG; 1 TABLET TWICE DAILY AND 150MG; 1 TABLET TWICE DAILY
  4. CAPECITABINE [Concomitant]
     Active Substance: CAPECITABINE
     Dosage: 3 DF, 2X/DAY
  5. CAPECITABINE [Concomitant]
     Active Substance: CAPECITABINE
     Dosage: 2 DF, 2X/DAY

REACTIONS (2)
  - Asthenia [Unknown]
  - Off label use [Unknown]
